FAERS Safety Report 6929769-9 (Version None)
Quarter: 2010Q3

REPORT INFORMATION
  Report Type: 
  Country: None (occurrence: None)
  Receive Date: 20100817
  Receipt Date: 20100817
  Transmission Date: 20110219
  Serious: No
  Sender: FDA-Public Use
  Company Number: None

PATIENT
  Age: 66 Year
  Sex: Female

DRUGS (4)
  1. TEKTURNA [Suspect]
     Dates: start: 20071123, end: 20080612
  2. TENORMIN [Concomitant]
  3. NORVASC [Concomitant]
  4. BENECAR [Concomitant]

REACTIONS (2)
  - CHRONIC HEPATITIS [None]
  - HEPATIC NECROSIS [None]
